FAERS Safety Report 6401052-X (Version None)
Quarter: 2009Q4

REPORT INFORMATION
  Report Type: 
  Country: None (occurrence: None)
  Receive Date: 20091013
  Receipt Date: 20091013
  Transmission Date: 20100525
  Serious: Yes (Hospitalization)
  Sender: FDA-Public Use
  Company Number: None

PATIENT
  Sex: Female

DRUGS (1)
  1. GENTAK [Suspect]
     Dates: start: 20091005, end: 20091005

REACTIONS (4)
  - BLISTER [None]
  - ERYTHEMA [None]
  - PERIORBITAL DISORDER [None]
  - PERIORBITAL OEDEMA [None]
